FAERS Safety Report 9330098 (Version 1)
Quarter: 2013Q2

REPORT INFORMATION
  Report Type: Report from Study
  Country: US (occurrence: US)
  Receive Date: 20130604
  Receipt Date: 20130604
  Transmission Date: 20140414
  Serious: Yes (Hospitalization, Other)
  Sender: FDA-Public Use
  Company Number: US-US-EMD SERONO, INC.-7214894

PATIENT
  Sex: Female

DRUGS (1)
  1. REBIF [Suspect]
     Indication: MULTIPLE SCLEROSIS
     Route: 058
     Dates: start: 20100104

REACTIONS (5)
  - Intestinal perforation [Unknown]
  - Cellulitis [Recovering/Resolving]
  - Anaemia [Unknown]
  - Herpes zoster [Recovering/Resolving]
  - Malaise [Unknown]
